FAERS Safety Report 9951517 (Version 1)
Quarter: 2014Q1

REPORT INFORMATION
  Report Type: Report from Study
  Country: US (occurrence: US)
  Receive Date: 20140304
  Receipt Date: 20140304
  Transmission Date: 20141002
  Serious: No
  Sender: FDA-Public Use
  Company Number: US-ABBVIE-13P-163-1070688-00

PATIENT
  Age: 53 Year
  Sex: Male

DRUGS (5)
  1. HUMIRA [Suspect]
     Indication: UVEITIS
     Dosage: ONE-TIME DOSE
     Route: 058
     Dates: start: 20130323
  2. HUMIRA [Suspect]
     Indication: ANKYLOSING SPONDYLITIS
  3. HUMIRA [Suspect]
     Indication: REITER^S SYNDROME
  4. HUMIRA [Suspect]
     Indication: PSORIASIS
  5. PREDNISONE [Concomitant]
     Indication: UVEITIS
     Dosage: STARTED AT 40MG DOWN TO 6 MG RIGHT NOW

REACTIONS (3)
  - Off label use [Not Recovered/Not Resolved]
  - Injection site pain [Recovered/Resolved]
  - Therapeutic response unexpected [Not Recovered/Not Resolved]
